FAERS Safety Report 5583615-7 (Version None)
Quarter: 2008Q1

REPORT INFORMATION
  Report Type: 
  Country: None (occurrence: None)
  Receive Date: 20080107
  Receipt Date: 20080103
  Transmission Date: 20080703
  Serious: Yes (Other)
  Sender: FDA-Public Use
  Company Number: DE-MERCK-0801DEU00020

PATIENT
  Age: 6 Month
  Weight: 7 kg

DRUGS (7)
  1. SINGULAIR [Suspect]
     Indication: BRONCHIAL OBSTRUCTION
     Route: 048
     Dates: start: 20080102, end: 20080102
  2. AZITHROMYCIN [Concomitant]
     Indication: PNEUMONIA
     Route: 048
     Dates: start: 20071220, end: 20070101
  3. CEFUROXIME [Concomitant]
     Indication: PNEUMONIA
     Route: 042
     Dates: start: 20070101
  4. LUMINAL [Concomitant]
     Indication: SEDATIVE THERAPY
     Route: 065
     Dates: start: 20070101, end: 20080101
  5. ATROVENT [Concomitant]
     Indication: BRONCHIAL OBSTRUCTION
     Dates: start: 20070101
  6. SULTANOL [Concomitant]
     Indication: BRONCHIAL OBSTRUCTION
     Dates: start: 20070101
  7. THEOPHYLLINE [Concomitant]
     Indication: BRONCHIAL OBSTRUCTION
     Route: 042
     Dates: start: 20070101, end: 20080101

REACTIONS (2)
  - CONVULSION [None]
  - HYPOGLYCAEMIA [None]
